FAERS Safety Report 5368178-3 (Version None)
Quarter: 2007Q2

REPORT INFORMATION
  Report Type: 
  Country: None (occurrence: None)
  Receive Date: 20070625
  Receipt Date: 20070614
  Transmission Date: 20071010
  Serious: Yes (Life-Threatening, Other)
  Sender: FDA-Public Use
  Company Number: GXKR2007US04698

PATIENT
  Age: 18 Year
  Sex: Female

DRUGS (1)
  1. METHERGINE [Suspect]
     Dosage: 0.2 MG, UNK

REACTIONS (5)
  - BLOOD PRESSURE INCREASED [None]
  - CARDIAC FAILURE [None]
  - ELECTROCARDIOGRAM ST SEGMENT DEPRESSION [None]
  - TACHYCARDIA [None]
  - VENTRICULAR HYPOKINESIA [None]
